FAERS Safety Report 18789898 (Version 3)
Quarter: 2021Q1

REPORT INFORMATION
  Report Type: Report from Study
  Country: None (occurrence: US)
  Receive Date: 20210126
  Receipt Date: 20210330
  Transmission Date: 20210419
  Serious: Yes (Other)
  Sender: FDA-Public Use
  Company Number: US-ABBVIE-21K-163-3746049-00

PATIENT
  Sex: Male
  Weight: 89.44 kg

DRUGS (2)
  1. COVID?19 VACCINE [Concomitant]
     Indication: COVID-19 IMMUNISATION
     Dosage: PFIZER
     Route: 030
     Dates: start: 20210308, end: 20210308
  2. HUMIRA [Suspect]
     Active Substance: ADALIMUMAB
     Indication: RHEUMATOID ARTHRITIS
     Route: 058
     Dates: start: 2018, end: 2019

REACTIONS (6)
  - Migraine [Recovered/Resolved]
  - Pyrexia [Recovered/Resolved]
  - Syncope [Recovered/Resolved]
  - Bladder cancer [Not Recovered/Not Resolved]
  - Blindness [Recovered/Resolved]
  - Haemorrhage [Recovered/Resolved]

NARRATIVE: CASE EVENT DATE: 2018
